FAERS Safety Report 19901412 (Version 3)
Quarter: 2022Q1

REPORT INFORMATION
  Report Type: Spontaneous
  Country: MX (occurrence: MX)
  Receive Date: 20210929
  Receipt Date: 20220228
  Transmission Date: 20220423
  Serious: Yes (Hospitalization)
  Sender: FDA-Public Use
  Company Number: MX-LUNDBECK-DKLU3039095

PATIENT
  Age: 4 Year
  Sex: Male
  Weight: 16 kg

DRUGS (5)
  1. CLOBAZAM [Suspect]
     Active Substance: CLOBAZAM
     Indication: Seizure
     Dosage: TAKES 1.5 TABLET IN THE MORNING, 1.5 TABLET IN THE AFTERNOON AND 1.5 TABLET AT NIGHT
     Route: 048
     Dates: start: 2019
  2. TOPIRAMATE [Concomitant]
     Active Substance: TOPIRAMATE
     Indication: Seizure
     Route: 048
  3. TOPIRAMATE [Concomitant]
     Active Substance: TOPIRAMATE
     Route: 048
  4. EPIVAL [Concomitant]
     Active Substance: DIVALPROEX SODIUM
     Indication: Seizure
     Dosage: 250 MG/ML DAILY
     Route: 048
  5. EPIVAL [Concomitant]
     Active Substance: DIVALPROEX SODIUM
     Dosage: 1 SPOONFUL
     Route: 048

REACTIONS (4)
  - Respiratory tract infection [Not Recovered/Not Resolved]
  - Off label use [Not Recovered/Not Resolved]
  - Off label use [Not Recovered/Not Resolved]
  - Wrong technique in product usage process [Unknown]

NARRATIVE: CASE EVENT DATE: 20190101
